FAERS Safety Report 6704551-6 (Version None)
Quarter: 2010Q2

REPORT INFORMATION
  Report Type: 
  Country: None (occurrence: None)
  Receive Date: 20100430
  Receipt Date: 20100426
  Transmission Date: 20101027
  Serious: Yes (Death, Hospitalization)
  Sender: FDA-Public Use
  Company Number: PHHY2010MX25087

PATIENT
  Sex: Female

DRUGS (1)
  1. ZOMETA [Suspect]
     Indication: BREAST CANCER
     Dosage: 4 MG, QMO
     Route: 042

REACTIONS (4)
  - BREAST CANCER METASTATIC [None]
  - CARDIO-RESPIRATORY ARREST [None]
  - METASTASES TO BONE [None]
  - PULMONARY OEDEMA [None]
